FAERS Safety Report 21584307 (Version 1)
Quarter: 2022Q4

REPORT INFORMATION
  Report Type: Spontaneous
  Country: CN (occurrence: CN)
  Receive Date: 20221111
  Receipt Date: 20221111
  Transmission Date: 20230113
  Serious: Yes (Other)
  Sender: FDA-Public Use
  Company Number: CN-009507513-2211CHN002023

PATIENT
  Age: 45 Year
  Sex: Male
  Weight: 65 kg

DRUGS (2)
  1. CILASTATIN SODIUM\IMIPENEM [Suspect]
     Active Substance: CILASTATIN SODIUM\IMIPENEM
     Indication: Infection
     Dosage: 1G, Q6H
     Route: 041
     Dates: start: 20220921, end: 20221006
  2. SODIUM CHLORIDE [Concomitant]
     Active Substance: SODIUM CHLORIDE
     Indication: Medication dilution
     Dosage: 100ML, Q6G
     Route: 041
     Dates: start: 20220921, end: 20221006

REACTIONS (12)
  - Epilepsy [Recovering/Resolving]
  - Dialysis [Unknown]
  - Drug ineffective [Unknown]
  - Blood pressure increased [Unknown]
  - Cough [Unknown]
  - Cardiac discomfort [Unknown]
  - Dyspnoea [Unknown]
  - Dyspnoea [Unknown]
  - Heart rate increased [Unknown]
  - Pyrexia [Unknown]
  - Pyrexia [Unknown]
  - Pyrexia [Unknown]

NARRATIVE: CASE EVENT DATE: 20220101
